FAERS Safety Report 6934941-8 (Version None)
Quarter: 2010Q3

REPORT INFORMATION
  Report Type: 
  Country: None (occurrence: None)
  Receive Date: 20100821
  Receipt Date: 20100811
  Transmission Date: 20110219
  Serious: Yes (Other)
  Sender: FDA-Public Use
  Company Number: GXKR2010GB09026

PATIENT
  Age: 44 Year
  Sex: Male

DRUGS (7)
  1. AMISULPRIDE (NGX) [Suspect]
     Dosage: 1600 MG, QD
     Route: 048
  2. DIAZEPAM (NGX) [Suspect]
     Dosage: 4.5 MG, QD
     Route: 048
  3. CLOZARIL [Suspect]
     Indication: SCHIZOPHRENIA
     Dosage: UNK
     Route: 048
     Dates: start: 20060220
  4. VALPROATE SODIUM [Suspect]
     Dosage: 200 MG, QD
     Route: 048
  5. HYOSCINE [Concomitant]
     Route: 048
  6. SENNA [Concomitant]
     Route: 048
  7. VOLTAREN [Concomitant]
     Route: 048

REACTIONS (3)
  - EOSINOPHILIA [None]
  - NEUTROPENIA [None]
  - WHITE BLOOD CELL COUNT INCREASED [None]
